FAERS Safety Report 22265001 (Version 3)
Quarter: 2024Q1

REPORT INFORMATION
  Report Type: Spontaneous
  Country: JP (occurrence: None)
  Receive Date: 20230428
  Receipt Date: 20240223
  Transmission Date: 20240409
  Serious: Yes (Other)
  Sender: FDA-Public Use
  Company Number: 2023A096720

PATIENT
  Age: 65 Year
  Sex: Female
  Weight: 77 kg

DRUGS (13)
  1. DAPAGLIFLOZIN [Suspect]
     Active Substance: DAPAGLIFLOZIN
     Indication: Diabetes mellitus
     Route: 048
  2. METFORMIN [Concomitant]
     Active Substance: METFORMIN HYDROCHLORIDE
     Indication: Type 2 diabetes mellitus
     Dosage: 500.0MG UNKNOWN
  3. SEMAGLUTIDE [Concomitant]
     Active Substance: SEMAGLUTIDE
     Indication: Type 2 diabetes mellitus
     Dosage: 3.0MG UNKNOWN
  4. PRAVASTATIN [Concomitant]
     Active Substance: PRAVASTATIN
     Indication: Dyslipidaemia
     Dosage: 10.0MG UNKNOWN
  5. PREDNISOLONE [Concomitant]
     Active Substance: PREDNISOLONE
     Indication: Asthma
     Dosage: 5.0MG UNKNOWN
  6. MONTELUKAST SODIUM [Concomitant]
     Active Substance: MONTELUKAST SODIUM
     Indication: Asthma
     Dosage: 10.0MG UNKNOWN
  7. BONOPRAZAN [Concomitant]
     Indication: Chronic gastritis
     Dosage: 10.0MG UNKNOWN
  8. SULBACTAM AMPICILLIN [Concomitant]
     Indication: Pneumonia aspiration
  9. LEVETIRACETAM [Concomitant]
     Active Substance: LEVETIRACETAM
     Dosage: 1000.0MG UNKNOWN
  10. EDARAVONE [Concomitant]
     Active Substance: EDARAVONE
     Route: 042
  11. FASUDIL HYDROCHLORIDE HYDRATE [Concomitant]
     Active Substance: FASUDIL HYDROCHLORIDE HYDRATE
  12. OZAGREL SODIUM [Concomitant]
     Active Substance: OZAGREL SODIUM
  13. SODIUM CHLORIDE [Concomitant]
     Active Substance: SODIUM CHLORIDE

REACTIONS (2)
  - Hypernatraemia [Recovering/Resolving]
  - Polyuria [Recovering/Resolving]
